FAERS Safety Report 9815846 (Version 3)
Quarter: 2014Q1

REPORT INFORMATION
  Report Type: Spontaneous
  Country: US (occurrence: US)
  Receive Date: 20140114
  Receipt Date: 20140306
  Transmission Date: 20141002
  Serious: Yes (Other)
  Sender: FDA-Public Use
  Company Number: US-JNJFOC-20140103008

PATIENT
  Age: 62 Year
  Sex: Male
  Weight: 154.22 kg

DRUGS (16)
  1. REMICADE [Suspect]
     Indication: CROHN^S DISEASE
     Route: 042
  2. COLESTID [Concomitant]
     Route: 048
     Dates: start: 20130925
  3. COLESTID [Concomitant]
     Route: 048
  4. ASACOL HD [Concomitant]
     Dosage: 3 QAM
     Route: 048
  5. DIOVAN [Concomitant]
     Route: 048
  6. MULTIVITAMINS [Concomitant]
     Route: 048
  7. VITAMIN B6 [Concomitant]
     Route: 065
  8. VITAMIN B12 [Concomitant]
     Route: 065
  9. FISH OIL [Concomitant]
     Route: 065
  10. PREDNISONE [Concomitant]
     Dosage: ONE DAILY FOR 3 DAYS
     Route: 048
  11. PREDNISONE [Concomitant]
     Dosage: 2 TABLETS FOR 3 DAYS
     Route: 048
     Dates: start: 20130322
  12. VICODIN HP [Concomitant]
     Indication: PAIN
     Dosage: 660 MG
     Route: 048
     Dates: start: 20131028
  13. PENICILLIN [Concomitant]
     Route: 065
  14. IRON SUPPLEMENT [Concomitant]
     Route: 065
  15. SOTALOL [Concomitant]
     Route: 065
  16. CHOLESTYRAMINE [Concomitant]
     Dosage: 4G/9G ONE SCOOP
     Route: 048
     Dates: start: 20130918

REACTIONS (7)
  - Osteomyelitis [Unknown]
  - Intestinal resection [Unknown]
  - Fistula [Unknown]
  - Appendicectomy [Unknown]
  - Cholecystectomy [Unknown]
  - Abnormal loss of weight [Unknown]
  - Diarrhoea [Unknown]
